FAERS Safety Report 12684495 (Version 5)
Quarter: 2017Q2

REPORT INFORMATION
  Report Type: Spontaneous
  Country: JO (occurrence: JO)
  Receive Date: 20160825
  Receipt Date: 20170606
  Transmission Date: 20170830
  Serious: Yes (Death, Hospitalization, Other)
  Sender: FDA-Public Use
  Company Number: JO-B.I. PHARMACEUTICALS,INC./RIDGEFIELD-2016-BI-54850DE

PATIENT
  Age: 78 Year
  Sex: Male

DRUGS (7)
  1. PLAVIX [Concomitant]
     Active Substance: CLOPIDOGREL BISULFATE
     Indication: PRODUCT USED FOR UNKNOWN INDICATION
     Route: 065
  2. CONCOR [Concomitant]
     Active Substance: BISOPROLOL FUMARATE
     Indication: PRODUCT USED FOR UNKNOWN INDICATION
     Route: 065
  3. INSULIN FAST [Concomitant]
     Indication: TYPE 2 DIABETES MELLITUS
     Dosage: FAST
     Route: 065
  4. ATACAND [Concomitant]
     Active Substance: CANDESARTAN CILEXETIL
     Indication: PRODUCT USED FOR UNKNOWN INDICATION
     Route: 065
  5. OFEV [Suspect]
     Active Substance: NINTEDANIB
     Indication: IDIOPATHIC PULMONARY FIBROSIS
     Dosage: DOSE PER APPLICATION: 150
     Route: 065
  6. NEXIUM PRN [Concomitant]
     Indication: PRODUCT USED FOR UNKNOWN INDICATION
     Route: 065
  7. GLUCOPHAGE [Concomitant]
     Active Substance: METFORMIN HYDROCHLORIDE
     Indication: TYPE 2 DIABETES MELLITUS
     Dosage: 850
     Route: 065

REACTIONS (12)
  - Sepsis [Unknown]
  - Cholecystitis [Unknown]
  - Decreased appetite [Unknown]
  - Jaundice [Unknown]
  - Glycosylated haemoglobin decreased [Unknown]
  - Death [Fatal]
  - Blood glucose decreased [Unknown]
  - Contusion [Unknown]
  - Arthralgia [Unknown]
  - Diarrhoea [Unknown]
  - Dehydration [Unknown]
  - Chest pain [Unknown]

NARRATIVE: CASE EVENT DATE: 20170221
